FAERS Safety Report 9871426 (Version 2)
Quarter: 2014Q1

REPORT INFORMATION
  Report Type: Spontaneous
  Country: IT (occurrence: IT)
  Receive Date: 20140205
  Receipt Date: 20140305
  Transmission Date: 20141002
  Serious: Yes (Hospitalization)
  Sender: FDA-Public Use
  Company Number: IT-WATSON-2014-01530

PATIENT
  Age: 42 Year
  Sex: Male

DRUGS (4)
  1. METFORMIN (UNKNOWN) [Suspect]
     Indication: SUICIDE ATTEMPT
     Dosage: 8.5 G, TOTAL
     Route: 048
     Dates: start: 20131004, end: 20131004
  2. METFORMIN (UNKNOWN) [Suspect]
     Dosage: 2550 MG, DAILY
     Route: 048
  3. NOVOMIX [Suspect]
     Indication: SUICIDE ATTEMPT
     Dosage: 140 UI (LOWER THAN 100) TOTAL
     Dates: start: 20131004, end: 20131004
  4. LANTUS [Concomitant]
     Indication: PRODUCT USED FOR UNKNOWN INDICATION
     Dosage: 20 UI (LOWER THAN 100), DAILY
     Route: 058

REACTIONS (2)
  - Hypoglycaemic coma [Recovered/Resolved]
  - Drug abuse [Recovered/Resolved]
